FAERS Safety Report 7036409-X (Version None)
Quarter: 2010Q4

REPORT INFORMATION
  Report Type: 
  Country: None (occurrence: None)
  Receive Date: 20101010
  Receipt Date: 20100928
  Transmission Date: 20110411
  Serious: Yes (Other)
  Sender: FDA-Public Use
  Company Number: PHHY2010US50134

PATIENT
  Sex: Male
  Weight: 77.5 kg

DRUGS (5)
  1. ZOMETA [Suspect]
     Indication: MULTIPLE MYELOMA
     Dosage: 4 MG, UNK
     Route: 042
     Dates: start: 20100622
  2. ZOMETA [Suspect]
     Dosage: 4 MG, UNK
     Route: 042
     Dates: start: 20100713
  3. METOPROLOL TARTRATE [Concomitant]
     Dosage: 25 MG, BID
  4. VELCADE [Concomitant]
     Indication: MULTIPLE MYELOMA
     Dosage: UNK
     Route: 042
     Dates: start: 20100309, end: 20100702
  5. CHEMOTHERAPEUTICS NOS [Concomitant]

REACTIONS (9)
  - BLOOD IMMUNOGLOBULIN A INCREASED [None]
  - BONE DISORDER [None]
  - BONE PAIN [None]
  - CHALAZION [None]
  - EYE SWELLING [None]
  - HEART RATE IRREGULAR [None]
  - MULTIPLE MYELOMA [None]
  - PALPITATIONS [None]
  - PURULENT DISCHARGE [None]
